FAERS Safety Report 6476656-9 (Version None)
Quarter: 2009Q4

REPORT INFORMATION
  Report Type: 
  Country: None (occurrence: None)
  Receive Date: 20091203
  Receipt Date: 20091203
  Transmission Date: 20100525
  Serious: Yes (Other)
  Sender: FDA-Public Use
  Company Number: None

PATIENT
  Sex: Female
  Weight: 65.4 kg

DRUGS (6)
  1. ADRIAMYCIN PFS [Suspect]
     Indication: BREAST CANCER
     Dosage: 60MG/M2 EVERY 2 WEEKS IV
     Route: 042
     Dates: start: 20060113, end: 20060224
  2. CYTOXAN [Suspect]
     Indication: BREAST CANCER
     Dosage: 600MG/M2 EVERY 2 WEEKS IV
     Route: 042
     Dates: start: 20060113, end: 20060224
  3. TRAZODONE HCL [Concomitant]
  4. TAMOXIFEN CITRATE [Concomitant]
  5. CALCIUM [Concomitant]
  6. VITAMIN D [Concomitant]

REACTIONS (4)
  - CHILLS [None]
  - HYPERSOMNIA [None]
  - MYELODYSPLASTIC SYNDROME [None]
  - PYREXIA [None]
